FAERS Safety Report 22918287 (Version 3)
Quarter: 2023Q4

REPORT INFORMATION
  Report Type: Other
  Country: US (occurrence: US)
  Receive Date: 20230907
  Receipt Date: 20231224
  Transmission Date: 20240110
  Serious: No
  Sender: FDA-Public Use
  Company Number: US-TRAVERE-2023TVT00402

PATIENT
  Age: 72 Year
  Sex: Female

DRUGS (2)
  1. FILSPARI [Suspect]
     Active Substance: SPARSENTAN
     Indication: Chronic kidney disease
     Dosage: 400 MG
     Route: 048
  2. FILSPARI [Suspect]
     Active Substance: SPARSENTAN
     Dosage: 400 MG
     Route: 048
     Dates: start: 20230912

REACTIONS (4)
  - Blood potassium increased [Unknown]
  - Product dose omission issue [Unknown]
  - Urinary tract infection [Unknown]
  - Product use in unapproved indication [Unknown]
